FAERS Safety Report 5987545-8 (Version None)
Quarter: 2008Q4

REPORT INFORMATION
  Report Type: 
  Country: None (occurrence: None)
  Receive Date: 20081209
  Receipt Date: 20081202
  Transmission Date: 20090506
  Serious: Yes (Other)
  Sender: FDA-Public Use
  Company Number: RU-GILEAD-2008-0017832

PATIENT
  Sex: Female
  Weight: 54.2 kg

DRUGS (6)
  1. AMBRISENTAN [Suspect]
     Indication: PULMONARY ARTERIAL HYPERTENSION
     Dates: start: 20070913, end: 20080818
  2. AMBRISENTAN [Suspect]
     Route: 048
     Dates: start: 20041206, end: 20070913
  3. METYPRED [Concomitant]
     Indication: MIXED CONNECTIVE TISSUE DISEASE
     Dates: start: 20050224
  4. DILTIAZEM [Concomitant]
     Dates: start: 20051017
  5. PLAQUENIL [Concomitant]
     Dates: start: 20020101
  6. CAL D3 [Concomitant]
     Dates: start: 20020101

REACTIONS (1)
  - INTRA-UTERINE DEATH [None]
